FAERS Safety Report 19790738 (Version 2)
Quarter: 2021Q3

REPORT INFORMATION
  Report Type: Spontaneous
  Country: US (occurrence: US)
  Receive Date: 20210906
  Receipt Date: 20210916
  Transmission Date: 20211014
  Serious: Yes (Other)
  Sender: FDA-Public Use
  Company Number: US-JNJFOC-20210851469

PATIENT
  Age: 64 Year
  Sex: Female

DRUGS (2)
  1. NEUTROGENA COOLDRY SPORT SUNSCREEN BROAD SPECTRUM SPF30 [Suspect]
     Active Substance: AVOBENZONE\HOMOSALATE\OCTISALATE\OCTOCRYLENE\OXYBENZONE
     Indication: PROPHYLAXIS AGAINST SOLAR RADIATION
     Dosage: PUT IN ON 20 MINUTES BEFORE YOU GO OUT AND REAPPLY TWICE A DAY WHILE I^M IN THE SUN. APPLY TO ARMS,
     Route: 061
     Dates: start: 20110824
  2. NEUTROGENA ULTRA SHEER BODY MIST SUNSCRN BR^D SPECT SPF 30 (AV\HOM\OCTI\OCTO\OX) [Suspect]
     Active Substance: AVOBENZONE\HOMOSALATE\OCTISALATE\OCTOCRYLENE\OXYBENZONE
     Indication: PROPHYLAXIS AGAINST SOLAR RADIATION
     Dosage: PUT IN ON 20 MINUTES BEFORE YOU GO OUT AND REAPPLY TWICE A DAY WHILE I^M IN THE SUN. APPLY TO ARMS,
     Route: 061
     Dates: start: 20110824

REACTIONS (2)
  - Squamous cell carcinoma [Unknown]
  - Basal cell carcinoma [Unknown]

NARRATIVE: CASE EVENT DATE: 20210818
